APPROVED DRUG PRODUCT: DOXYCYCLINE HYCLATE
Active Ingredient: DOXYCYCLINE HYCLATE
Strength: EQ 100MG BASE/VIAL
Dosage Form/Route: INJECTABLE;INJECTION
Application: A217487 | Product #001
Applicant: AMNEAL EU LTD
Approved: Dec 4, 2024 | RLD: No | RS: No | Type: DISCN